FAERS Safety Report 6907026-4 (Version None)
Quarter: 2010Q3

REPORT INFORMATION
  Report Type: 
  Country: None (occurrence: None)
  Receive Date: 20100802
  Receipt Date: 20100726
  Transmission Date: 20110219
  Serious: Yes (Other)
  Sender: FDA-Public Use
  Company Number: TRP_07150_2010

PATIENT
  Sex: Male

DRUGS (2)
  1. RIBASPHERE [Suspect]
     Indication: PRODUCT USED FOR UNKNOWN INDICATION
     Dosage: (DF)
  2. PEGASYS [Suspect]
     Indication: PRODUCT USED FOR UNKNOWN INDICATION
     Dosage: (DF)

REACTIONS (7)
  - ALOPECIA [None]
  - CHEST PAIN [None]
  - DRY SKIN [None]
  - HEPATIC PAIN [None]
  - HYPERSOMNIA [None]
  - MEMORY IMPAIRMENT [None]
  - TEMPERATURE INTOLERANCE [None]
